FAERS Safety Report 8579506-X (Version None)
Quarter: 2012Q3

REPORT INFORMATION
  Report Type: 
  Country: None (occurrence: None)
  Receive Date: 20120808
  Receipt Date: 20120801
  Transmission Date: 20120928
  Serious: Yes (Other)
  Sender: FDA-Public Use
  Company Number: GB-GLAXOSMITHKLINE-B0819660A

PATIENT
  Age: 42 Year
  Sex: Female
  Weight: 98.43 kg

DRUGS (4)
  1. VENTOLIN [Concomitant]
     Indication: ASTHMA
     Route: 048
  2. TELMISARTAN [Concomitant]
     Indication: HYPERTENSION
     Route: 048
  3. CITALOPRAM HYDROBROMIDE [Concomitant]
     Indication: DEPRESSION
     Route: 048
  4. ZANTAC [Suspect]
     Indication: GASTROOESOPHAGEAL REFLUX DISEASE
     Route: 048
     Dates: start: 20120717, end: 20120717

REACTIONS (2)
  - VISION BLURRED [None]
  - HEADACHE [None]
